FAERS Safety Report 10698980 (Version 3)
Quarter: 2015Q1

REPORT INFORMATION
  Report Type: Spontaneous
  Country: US (occurrence: US)
  Receive Date: 20150108
  Receipt Date: 20150202
  Transmission Date: 20150721
  Serious: No
  Sender: FDA-Public Use
  Company Number: US-GLAXOSMITHKLINE-US2014GSK044653

PATIENT
  Age: 76 Year
  Sex: Male

DRUGS (4)
  1. VOTRIENT [Suspect]
     Active Substance: PAZOPANIB HYDROCHLORIDE
     Indication: SPINDLE CELL SARCOMA
     Dosage: UNK
     Dates: start: 20140805
  2. VOTRIENT [Suspect]
     Active Substance: PAZOPANIB HYDROCHLORIDE
     Dosage: UNK
  3. VOTRIENT [Suspect]
     Active Substance: PAZOPANIB HYDROCHLORIDE
     Indication: SARCOMA
     Dosage: UNK
     Dates: start: 20140801, end: 20141215
  4. MORPHINE [Concomitant]
     Active Substance: MORPHINE

REACTIONS (5)
  - Tibia fracture [Unknown]
  - Therapeutic response unexpected [Unknown]
  - Bone operation [Recovered/Resolved]
  - Emergency care examination [Recovered/Resolved]
  - Physiotherapy [Unknown]

NARRATIVE: CASE EVENT DATE: 20141215
